FAERS Safety Report 16652015 (Version 3)
Quarter: 2020Q4

REPORT INFORMATION
  Report Type: Spontaneous
  Country: US (occurrence: US)
  Receive Date: 20190731
  Receipt Date: 20201123
  Transmission Date: 20210113
  Serious: No
  Sender: FDA-Public Use
  Company Number: US-PFIZER INC-2018380800

PATIENT
  Age: 49 Year
  Sex: Male
  Weight: 95.25 kg

DRUGS (3)
  1. CAVERJECT [Suspect]
     Active Substance: ALPROSTADIL
     Dosage: 40 MG, INJECTED ONCE IN 24 HOURS 60-70CCS IN SYRINGE
     Dates: start: 2017
  2. CAVERJECT [Suspect]
     Active Substance: ALPROSTADIL
     Indication: ERECTILE DYSFUNCTION
     Dosage: 20 UG, UNK
  3. CAVERJECT [Suspect]
     Active Substance: ALPROSTADIL
     Dosage: 40 UG, AS NEEDED
     Route: 058

REACTIONS (5)
  - Product dispensing error [Unknown]
  - Visual impairment [Unknown]
  - Incorrect route of product administration [Unknown]
  - Overdose [Unknown]
  - Depression [Unknown]

NARRATIVE: CASE EVENT DATE: 2017
